FAERS Safety Report 16178666 (Version 2)
Quarter: 2019Q2

REPORT INFORMATION
  Report Type: Spontaneous
  Country: US (occurrence: US)
  Receive Date: 20190410
  Receipt Date: 20190517
  Transmission Date: 20190711
  Serious: No
  Sender: FDA-Public Use
  Company Number: US-ASTRAZENECA-2019SE41368

PATIENT
  Sex: Female
  Weight: 136.1 kg

DRUGS (2)
  1. SYMBICORT [Suspect]
     Active Substance: BUDESONIDE\FORMOTEROL FUMARATE DIHYDRATE
     Indication: CHEST PAIN
     Dosage: 160/4.5 MCG TWO TIMES A DAY
     Route: 055
     Dates: start: 20190311
  2. LOSARTAN. [Concomitant]
     Active Substance: LOSARTAN
     Indication: BLOOD PRESSURE MEASUREMENT
     Dosage: UNKNOWN
     Route: 065

REACTIONS (9)
  - Product use in unapproved indication [Unknown]
  - Somnolence [Unknown]
  - Off label use [Unknown]
  - Device failure [Unknown]
  - Dyspnoea [Unknown]
  - Tongue erythema [Unknown]
  - Fatigue [Unknown]
  - Condition aggravated [Unknown]
  - Wrong technique in product usage process [Unknown]
